FAERS Safety Report 21538564 (Version 1)
Quarter: 2022Q4

REPORT INFORMATION
  Report Type: Spontaneous
  Country: CN (occurrence: CN)
  Receive Date: 20221102
  Receipt Date: 20221102
  Transmission Date: 20230112
  Serious: Yes (Other)
  Sender: FDA-Public Use
  Company Number: None

PATIENT
  Age: 35 Year
  Sex: Male
  Weight: 58 kg

DRUGS (6)
  1. CYCLOPHOSPHAMIDE [Suspect]
     Active Substance: CYCLOPHOSPHAMIDE
     Indication: Plasma cell myeloma
     Dosage: 0.6 G, ONCE DAILY (DILUTED WITH NS 250 ML) DAY 1-4
     Route: 041
     Dates: start: 20220924, end: 20220927
  2. SODIUM CHLORIDE [Suspect]
     Active Substance: SODIUM CHLORIDE
     Indication: Medication dilution
     Dosage: 250 ML, ONCE DAILY (USED TO DILUTE CYCLOPHOSPHAMIDE 0.6 G)
     Route: 041
     Dates: start: 20220924, end: 20220927
  3. SODIUM CHLORIDE [Suspect]
     Active Substance: SODIUM CHLORIDE
     Dosage: 250 ML, ONCE DAILY (USED TO DILUTE ETOPOSIDE 50 MG)
     Route: 041
     Dates: start: 20220924, end: 20220927
  4. SODIUM CHLORIDE [Suspect]
     Active Substance: SODIUM CHLORIDE
     Dosage: 500 ML, ONCE DAILY (USED TO DILUTE CISPLATIN 10 MG)
     Route: 041
     Dates: start: 20220924, end: 20220927
  5. ETOPOSIDE [Suspect]
     Active Substance: ETOPOSIDE
     Indication: Plasma cell myeloma
     Dosage: 50 MG, ONCE DAILY (DILUTED WITH NS 250 ML) DAY 1-4
     Route: 041
     Dates: start: 20220924, end: 20220927
  6. CISPLATIN [Suspect]
     Active Substance: CISPLATIN
     Indication: Plasma cell myeloma
     Dosage: 10 MG, ONCE DAILY (DILUTED WITH NS 500 ML) DAY 1-4
     Route: 041
     Dates: start: 20220924, end: 20220927

REACTIONS (1)
  - Myelosuppression [Recovering/Resolving]

NARRATIVE: CASE EVENT DATE: 20221002
